FAERS Safety Report 6557881-5 (Version None)
Quarter: 2010Q1

REPORT INFORMATION
  Report Type: 
  Country: None (occurrence: None)
  Receive Date: 20100129
  Receipt Date: 20100121
  Transmission Date: 20100710
  Serious: Yes (Other)
  Sender: FDA-Public Use
  Company Number: CH-AMGEN-QUU383550

PATIENT
  Age: 58 Year
  Sex: Male
  Weight: 77 kg

DRUGS (12)
  1. ARANESP [Suspect]
     Indication: ANAEMIA OF MALIGNANT DISEASE
     Route: 058
     Dates: start: 20091123
  2. NEUPOGEN [Suspect]
     Indication: NEUTROPENIA
  3. ENDOXAN [Suspect]
     Route: 042
     Dates: start: 20091123, end: 20091125
  4. FLUDARABINE [Suspect]
     Route: 042
  5. MABTHERA [Concomitant]
     Route: 042
     Dates: start: 20091123
  6. SPIRICORT [Concomitant]
     Route: 048
     Dates: start: 20090810
  7. BACTRIM [Concomitant]
     Route: 048
     Dates: start: 20090810
  8. VALTREX [Concomitant]
     Route: 048
     Dates: start: 20090110
  9. METFORMIN [Concomitant]
     Route: 048
  10. SORTIS [Concomitant]
     Route: 048
  11. DIAMICRON [Concomitant]
     Route: 048
  12. NEXIUM [Concomitant]

REACTIONS (6)
  - ANAEMIA [None]
  - APLASIA PURE RED CELL [None]
  - BLOOD ERYTHROPOIETIN INCREASED [None]
  - HAEMOGLOBIN DECREASED [None]
  - NEUTROPHIL COUNT DECREASED [None]
  - RETICULOCYTE COUNT DECREASED [None]
